FAERS Safety Report 12470764 (Version 3)
Quarter: 2017Q4

REPORT INFORMATION
  Report Type: Report from Study
  Country: US (occurrence: US)
  Receive Date: 20160616
  Receipt Date: 20171111
  Transmission Date: 20180320
  Serious: Yes (Other)
  Sender: FDA-Public Use
  Company Number: US-ROCHE-1776272

PATIENT
  Age: 81 Year
  Sex: Female

DRUGS (22)
  1. ESBRIET [Suspect]
     Active Substance: PIRFENIDONE
     Indication: IDIOPATHIC PULMONARY FIBROSIS
     Dosage: TITRATION TWO CAPSULES
     Route: 048
     Dates: start: 201604, end: 20160602
  2. VALIUM [Suspect]
     Active Substance: DIAZEPAM
     Indication: PRODUCT USED FOR UNKNOWN INDICATION
     Route: 065
  3. GLIMEPIRIDE. [Concomitant]
     Active Substance: GLIMEPIRIDE
     Route: 048
  4. PROTONIX [Concomitant]
     Active Substance: PANTOPRAZOLE SODIUM
     Route: 048
  5. BROVANA [Concomitant]
     Active Substance: ARFORMOTEROL TARTRATE
  6. AZOPT [Concomitant]
     Active Substance: BRINZOLAMIDE
     Dosage: 10% 1 DROP TO BOTH EYES TWICE DAILY
     Route: 065
  7. EFFEXOR [Concomitant]
     Active Substance: VENLAFAXINE HYDROCHLORIDE
     Route: 048
  8. XOPENEX [Concomitant]
     Active Substance: LEVALBUTEROL HYDROCHLORIDE
     Dosage: 45MCG/ACTUALTION
     Route: 065
  9. ALPHAGAN P [Concomitant]
     Active Substance: BRIMONIDINE TARTRATE
     Route: 047
  10. ALBUTEROL. [Concomitant]
     Active Substance: ALBUTEROL
     Dosage: 90MCG, 2 PUFFS PER DAY
     Route: 065
  11. BUDESONIDE. [Concomitant]
     Active Substance: BUDESONIDE
     Dosage: 0.5MG/2ML NEBULIZATION ROUTE
     Route: 045
  12. METFORMIN [Concomitant]
     Active Substance: METFORMIN HYDROCHLORIDE
     Route: 048
  13. TRICOR [Concomitant]
     Active Substance: FENOFIBRATE
     Route: 048
  14. FISH OIL [Concomitant]
     Active Substance: FISH OIL
     Dosage: 667-250MG UNIT
     Route: 048
  15. TRAMADOL. [Concomitant]
     Active Substance: TRAMADOL
     Route: 048
  16. LOSARTAN. [Concomitant]
     Active Substance: LOSARTAN
     Route: 048
  17. METOPROLOL. [Concomitant]
     Active Substance: METOPROLOL
     Dosage: 0.5 TABS BY MOUTH 2 TIMES DAILY
     Route: 048
  18. OXYGEN. [Concomitant]
     Active Substance: OXYGEN
     Dosage: 2 LITERS CONTINUOUSLY
     Route: 065
  19. LASIX [Concomitant]
     Active Substance: FUROSEMIDE
     Route: 048
  20. PERI-COLACE [Concomitant]
     Active Substance: CASANTHRANOL\DOCUSATE SODIUM
     Dosage: 8.6-50MG/ TABS ONCE DAILY
     Route: 048
  21. RESTASIS [Concomitant]
     Active Substance: CYCLOSPORINE
     Dosage: 0.05% OPTHALMIC EMULSION
     Route: 065
  22. AMLODIPINE [Concomitant]
     Active Substance: AMLODIPINE BESYLATE

REACTIONS (3)
  - Melaena [Not Recovered/Not Resolved]
  - Abdominal pain upper [Not Recovered/Not Resolved]
  - Urticaria [Unknown]

NARRATIVE: CASE EVENT DATE: 20160602
